FAERS Safety Report 14767752 (Version 1)
Quarter: 2018Q2

REPORT INFORMATION
  Report Type: Spontaneous
  Country: GB (occurrence: GB)
  Receive Date: 20180417
  Receipt Date: 20180417
  Transmission Date: 20180711
  Serious: Yes (Other)
  Sender: FDA-Public Use
  Company Number: GB-TEVA-2018-GB-874024

PATIENT
  Sex: Male

DRUGS (6)
  1. FELODOPINE [Concomitant]
     Route: 065
  2. PARMID XL (SANDOZ) [Concomitant]
     Dosage: 2.5 MILLIGRAM DAILY;
  3. AMLODIPINE [Suspect]
     Active Substance: AMLODIPINE BESYLATE
     Route: 065
  4. LOSARTAN. [Concomitant]
     Active Substance: LOSARTAN
     Route: 065
  5. NEBIVOLOL. [Concomitant]
     Active Substance: NEBIVOLOL
     Route: 065
  6. ASPIRIN. [Concomitant]
     Active Substance: ASPIRIN
     Route: 065

REACTIONS (3)
  - Visual impairment [Unknown]
  - Glare [Unknown]
  - Migraine [Unknown]
